FAERS Safety Report 9220879 (Version 2)
Quarter: 2013Q2

REPORT INFORMATION
  Report Type: Spontaneous
  Country: FR (occurrence: US)
  Receive Date: 20130409
  Receipt Date: 20130503
  Transmission Date: 20140414
  Serious: Yes (Other)
  Sender: FDA-Public Use
  Company Number: US-PFIZER INC-2013108560

PATIENT
  Age: 60 Year
  Sex: Male

DRUGS (2)
  1. CHLORAMPHENICOL [Suspect]
     Dosage: 1 G, 2X/DAY
  2. CHLORAMPHENICOL [Suspect]
     Dosage: 100 MG, 2X/DAY

REACTIONS (1)
  - Aplastic anaemia [Recovered/Resolved]
